FAERS Safety Report 15349161 (Version 1)
Quarter: 2018Q3

REPORT INFORMATION
  Report Type: Spontaneous
  Country: US (occurrence: US)
  Receive Date: 20180904
  Receipt Date: 20180904
  Transmission Date: 20181010
  Serious: No
  Sender: FDA-Public Use
  Company Number: US-AMNEAL PHARMACEUTICALS-2018AMN00412

PATIENT
  Sex: Female
  Weight: 67.57 kg

DRUGS (2)
  1. FLUOXETINE [Concomitant]
     Active Substance: FLUOXETINE HYDROCHLORIDE
     Dosage: 60 MG, 2X/DAY
     Route: 048
     Dates: start: 201705
  2. GABAPENTIN. [Suspect]
     Active Substance: GABAPENTIN
     Indication: PAIN
     Dosage: 4 MG, 3X/DAY

REACTIONS (3)
  - Drug ineffective [Unknown]
  - Paraesthesia [Unknown]
  - Dyspepsia [Unknown]
